FAERS Safety Report 7764522-8 (Version None)
Quarter: 2011Q3

REPORT INFORMATION
  Report Type: 
  Country: None (occurrence: None)
  Receive Date: 20110916
  Receipt Date: 20110905
  Transmission Date: 20111222
  Serious: Yes (Other)
  Sender: FDA-Public Use
  Company Number: TUK2011A00135

PATIENT
  Sex: Male

DRUGS (10)
  1. ACTOS [Suspect]
     Indication: DIABETES MELLITUS
     Dosage: (45 MG) ORAL
     Route: 048
     Dates: end: 20110822
  2. DEXAMETHASONE [Concomitant]
  3. NEFOPAM (NEFOPAM) [Concomitant]
  4. GLICLAZIDE (GLICLAZIDE) [Concomitant]
  5. MORPHINE [Concomitant]
  6. ACETAMINOPHEN [Concomitant]
  7. LAXIDO (MACROGOL) [Concomitant]
  8. OMEPRAZOLE [Concomitant]
  9. HUMULIN (INSULIN HUMAN) [Concomitant]
  10. SIMVASTATIN [Concomitant]

REACTIONS (1)
  - BLADDER CANCER [None]
